FAERS Safety Report 5092165-6 (Version None)
Quarter: 2006Q3

REPORT INFORMATION
  Report Type: 
  Country: None (occurrence: None)
  Receive Date: 20060828
  Receipt Date: 20060828
  Transmission Date: 20061208
  Serious: No
  Sender: FDA-Public Use
  Company Number: None

PATIENT
  Age: 40 Year
  Sex: Female
  Weight: 77.1115 kg

DRUGS (2)
  1. PAROXETINE [Suspect]
     Indication: DEPRESSION
     Dosage: 1 TABLET ONCE A DAY PO
     Route: 048
     Dates: start: 20000301, end: 20060801
  2. PAROXETINE [Suspect]
     Indication: GENERALISED ANXIETY DISORDER
     Dosage: 1 TABLET ONCE A DAY PO
     Route: 048
     Dates: start: 20000301, end: 20060801

REACTIONS (11)
  - ARTHRALGIA [None]
  - COUGH [None]
  - DISTURBANCE IN ATTENTION [None]
  - DRUG WITHDRAWAL SYNDROME [None]
  - EYE PAIN [None]
  - FURUNCLE [None]
  - MYALGIA [None]
  - RHINORRHOEA [None]
  - STOMACH DISCOMFORT [None]
  - TINNITUS [None]
  - WHEEZING [None]
